FAERS Safety Report 4709533-1 (Version None)
Quarter: 2005Q3

REPORT INFORMATION
  Report Type: 
  Country: None (occurrence: None)
  Receive Date: 20050707
  Receipt Date: 20050623
  Transmission Date: 20060218
  Serious: Yes (Life-Threatening, Hospitalization, Other)
  Sender: FDA-Public Use
  Company Number: 19160

PATIENT
  Age: 65 Year
  Sex: Male
  Weight: 77.1115 kg

DRUGS (1)
  1. DAUNORUBICIN HCL [Suspect]
     Indication: ACUTE MYELOID LEUKAEMIA
     Dosage: 45MG/M2 OTHER
     Dates: start: 20050131

REACTIONS (9)
  - BACK PAIN [None]
  - CATHETER RELATED INFECTION [None]
  - FEBRILE NEUTROPENIA [None]
  - IMMUNOSUPPRESSION [None]
  - INFECTION [None]
  - INTERVERTEBRAL DISC DISORDER [None]
  - MYALGIA [None]
  - PYREXIA [None]
  - RESPIRATORY DISTRESS [None]
